FAERS Safety Report 5953783-3 (Version None)
Quarter: 2008Q4

REPORT INFORMATION
  Report Type: 
  Country: None (occurrence: None)
  Receive Date: 20081114
  Receipt Date: 20081105
  Transmission Date: 20090506
  Serious: Yes (Hospitalization, Other)
  Sender: FDA-Public Use
  Company Number: US-PFIZER INC-2008094087

PATIENT
  Sex: Male
  Weight: 111.1 kg

DRUGS (6)
  1. CELEBREX [Suspect]
     Indication: ARTHRITIS
     Dates: end: 20080101
  2. ATENOLOL [Concomitant]
  3. PLAQUENIL [Concomitant]
  4. TRICOR [Concomitant]
  5. PRAVACHOL [Concomitant]
  6. NEXIUM [Concomitant]

REACTIONS (3)
  - NEURALGIA [None]
  - THROMBOSIS [None]
  - VASCULAR OCCLUSION [None]
